FAERS Safety Report 5299666-6 (Version None)
Quarter: 2007Q1

REPORT INFORMATION
  Report Type: 
  Country: None (occurrence: None)
  Receive Date: 20070201
  Receipt Date: 20061101
  Transmission Date: 20070707
  Serious: No
  Sender: FDA-Public Use
  Company Number: 2006PV024384

PATIENT
  Age: 72 Year
  Sex: Female
  Weight: 97.977 kg

DRUGS (9)
  1. BYETTA [Suspect]
     Indication: DIABETES MELLITUS NON-INSULIN-DEPENDENT
     Dosage: 5 MCG; BID; SC
     Route: 058
     Dates: start: 20051101, end: 20060101
  2. BYETTA [Suspect]
     Indication: DIABETES MELLITUS NON-INSULIN-DEPENDENT
     Dosage: 5 MCG; BID; SC
     Route: 058
     Dates: start: 20060801
  3. COUMADIN [Concomitant]
  4. AMARYL [Concomitant]
  5. GLUCOPHAGE XR [Concomitant]
  6. TRAZODONE HCL [Concomitant]
  7. TYLENOL [Concomitant]
  8. TUMS [Concomitant]
  9. GLUCOPHAGE XR [Concomitant]

REACTIONS (2)
  - INJECTION SITE RASH [None]
  - WEIGHT DECREASED [None]
